FAERS Safety Report 10633130 (Version 1)
Quarter: 2014Q4

REPORT INFORMATION
  Report Type: Spontaneous
  Country: US (occurrence: US)
  Receive Date: 20141205
  Receipt Date: 20141205
  Transmission Date: 20150529
  Serious: No
  Sender: FDA-Public Use
  Company Number: US-BRISTOL-MYERS SQUIBB COMPANY-21478045

PATIENT
  Age: 29 Year
  Sex: Female

DRUGS (9)
  1. DEPAKOTE [Concomitant]
     Active Substance: DIVALPROEX SODIUM
  2. ORENCIA [Suspect]
     Active Substance: ABATACEPT
     Dosage: LAST DOSE:23SEP2014
  3. PLAQUENIL [Concomitant]
     Active Substance: HYDROXYCHLOROQUINE SULFATE
  4. ELIDEL [Concomitant]
     Active Substance: PIMECROLIMUS
  5. PREDNISONE. [Concomitant]
     Active Substance: PREDNISONE
  6. LEUCOVORIN [Concomitant]
     Active Substance: LEUCOVORIN
  7. RESTASIS [Concomitant]
     Active Substance: CYCLOSPORINE
  8. METHOTREXATE [Concomitant]
     Active Substance: METHOTREXATE
  9. KEFLEX [Concomitant]
     Active Substance: CEPHALEXIN

REACTIONS (2)
  - Contusion [Unknown]
  - Drug dose omission [Unknown]
